FAERS Safety Report 21273751 (Version 1)
Quarter: 2022Q3

REPORT INFORMATION
  Report Type: Spontaneous
  Country: US (occurrence: None)
  Receive Date: 20220830
  Receipt Date: 20220830
  Transmission Date: 20221027
  Serious: Yes (Life-Threatening)
  Sender: FDA-Public Use
  Company Number: None

PATIENT
  Age: 48 Year
  Sex: Male
  Weight: 76.5 kg

DRUGS (3)
  1. GENETICALLY-MODIFIED AUTOLOGOUS T CELLS NOS [Suspect]
     Active Substance: GENETICALLY-MODIFIED AUTOLOGOUS T CELLS NOS
     Indication: Cystinosis
     Route: 008
     Dates: start: 20200628
  2. cycosphorine [Concomitant]
  3. mocopehnalate [Concomitant]

REACTIONS (4)
  - Thyroid disorder [None]
  - Therapy cessation [None]
  - Manipulation [None]
  - Victim of crime [None]

NARRATIVE: CASE EVENT DATE: 20220628
